FAERS Safety Report 24416165 (Version 6)
Quarter: 2025Q3

REPORT INFORMATION
  Report Type: Spontaneous
  Country: JP (occurrence: JP)
  Receive Date: 20241009
  Receipt Date: 20250922
  Transmission Date: 20251020
  Serious: Yes (Death, Other)
  Sender: NOVARTIS
  Company Number: JP-002147023-NVSJ2024JP004246

PATIENT

DRUGS (2)
  1. KYMRIAH [Suspect]
     Active Substance: TISAGENLECLEUCEL
     Indication: Diffuse large B-cell lymphoma
     Route: 041
     Dates: start: 202304, end: 202304
  2. EPKINLY [Suspect]
     Active Substance: EPCORITAMAB-BYSP
     Indication: Product used for unknown indication
     Route: 065

REACTIONS (5)
  - T-cell lymphoma [Fatal]
  - Malignant neoplasm progression [Fatal]
  - Haemophagocytic lymphohistiocytosis [Fatal]
  - Cytokine release syndrome [Fatal]
  - Diffuse large B-cell lymphoma recurrent [Unknown]

NARRATIVE: CASE EVENT DATE: 20240101
